FAERS Safety Report 25504578 (Version 1)
Quarter: 2025Q3

REPORT INFORMATION
  Report Type: Spontaneous
  Country: US (occurrence: None)
  Receive Date: 20250701
  Receipt Date: 20250701
  Transmission Date: 20251021
  Serious: Yes (Disabling)
  Sender: FDA-CTU
  Company Number: None

PATIENT
  Age: 58 Year
  Sex: Male
  Weight: 87.75 kg

DRUGS (5)
  1. HERBALS\MITRAGYNINE [Suspect]
     Active Substance: HERBALS\MITRAGYNINE
     Indication: Asthenia
     Dates: start: 20250101, end: 20250630
  2. UNSPECIFIED INGREDIENT [Concomitant]
     Active Substance: UNSPECIFIED INGREDIENT
  3. LOSARTAN [Concomitant]
     Active Substance: LOSARTAN
  4. MAGNESIUM CITRATE [Concomitant]
     Active Substance: MAGNESIUM CITRATE
  5. AGMATINE [Concomitant]

REACTIONS (7)
  - Withdrawal syndrome [None]
  - Formication [None]
  - Feeling of body temperature change [None]
  - Insomnia [None]
  - Fatigue [None]
  - Emotional disorder [None]
  - Sneezing [None]

NARRATIVE: CASE EVENT DATE: 20250630
